FAERS Safety Report 7519529-2 (Version None)
Quarter: 2011Q2

REPORT INFORMATION
  Report Type: 
  Country: None (occurrence: None)
  Receive Date: 20110524
  Receipt Date: 20110512
  Transmission Date: 20111010
  Serious: Yes (Life-Threatening)
  Sender: FDA-Public Use
  Company Number: DSJ-2011-05878

PATIENT
  Age: 67 Year
  Sex: Male
  Weight: 79 kg

DRUGS (4)
  1. SELBEX (TEPRENONE) - (CAPSULE) (TEPRENONE) [Concomitant]
  2. OLMESARTAN MEDOXOMIL [Suspect]
     Indication: ESSENTIAL HYPERTENSION
     Dosage: 20 MG (20 MG,1 IN 1 D),PER ORAL ; 20 MG (20 MG,1 IN 1 D),PER ORAL
     Route: 048
     Dates: start: 20110121, end: 20110323
  3. PLETAL [Suspect]
     Indication: CEREBRAL INFARCTION
     Dosage: 200 MG (100 MG,2 IN 1 D),PER ORAL
     Route: 048
     Dates: start: 20100601, end: 20110323
  4. PLETAL [Suspect]
     Indication: LACUNAR INFARCTION
     Dosage: 200 MG (100 MG,2 IN 1 D),PER ORAL
     Route: 048
     Dates: start: 20100601, end: 20110323

REACTIONS (4)
  - MUCOSAL HAEMORRHAGE [None]
  - HAEMORRHAGIC DIATHESIS [None]
  - IDIOPATHIC THROMBOCYTOPENIC PURPURA [None]
  - TONGUE DISORDER [None]
